FAERS Safety Report 19087525 (Version 1)
Quarter: 2021Q2

REPORT INFORMATION
  Report Type: Spontaneous
  Country: US (occurrence: US)
  Receive Date: 20210402
  Receipt Date: 20210402
  Transmission Date: 20210717
  Serious: No
  Sender: FDA-Public Use
  Company Number: None

PATIENT
  Age: 54 Year
  Sex: Female
  Weight: 66.6 kg

DRUGS (1)
  1. HCG [Suspect]
     Active Substance: GONADOTROPHIN, CHORIONIC
     Indication: WEIGHT DECREASED
     Dosage: ?          QUANTITY:28 INJECTION(S);?
     Route: 058
     Dates: start: 20210317, end: 20210401

REACTIONS (3)
  - Wrong technique in product usage process [None]
  - Product quality issue [None]
  - Rash [None]

NARRATIVE: CASE EVENT DATE: 20210317
